FAERS Safety Report 24149646 (Version 1)
Quarter: 2024Q3

REPORT INFORMATION
  Report Type: Spontaneous
  Country: PT (occurrence: PT)
  Receive Date: 20240730
  Receipt Date: 20240730
  Transmission Date: 20241016
  Serious: Yes (Other)
  Sender: HIKMA
  Company Number: PT-HIKMA PHARMACEUTICALS-PT-H14001-24-07140

PATIENT
  Age: 34 Year
  Sex: Female

DRUGS (1)
  1. METHYLPREDNISOLONE [Suspect]
     Active Substance: METHYLPREDNISOLONE
     Indication: Product used for unknown indication
     Dosage: UNKNOWN
     Route: 065

REACTIONS (1)
  - Drug-induced liver injury [Unknown]
